FAERS Safety Report 13040360 (Version 2)
Quarter: 2016Q4

REPORT INFORMATION
  Report Type: Spontaneous
  Country: PH (occurrence: PH)
  Receive Date: 20161219
  Receipt Date: 20161227
  Transmission Date: 20170207
  Serious: Yes (Life-Threatening, Hospitalization, Other)
  Sender: FDA-Public Use
  Company Number: PH-SA-2016SA227414

PATIENT
  Age: 33 Year
  Sex: Male

DRUGS (5)
  1. METFORMIN [Suspect]
     Active Substance: METFORMIN HYDROCHLORIDE
     Indication: DIABETES MELLITUS
     Dosage: 28 TABLETS
     Route: 048
  2. METFORMIN [Suspect]
     Active Substance: METFORMIN HYDROCHLORIDE
     Indication: DIABETES MELLITUS
     Route: 065
  3. METAMFETAMINE [Suspect]
     Active Substance: METHAMPHETAMINE
     Route: 048
  4. GLIBENCLAMIDE [Suspect]
     Active Substance: GLYBURIDE
     Indication: DIABETES MELLITUS
     Dosage: 12 TABLETS
     Route: 048
  5. GLIBENCLAMIDE [Suspect]
     Active Substance: GLYBURIDE
     Indication: DIABETES MELLITUS
     Route: 065

REACTIONS (8)
  - Headache [Recovering/Resolving]
  - Hypertension [Recovering/Resolving]
  - Lactic acidosis [Recovering/Resolving]
  - Intentional overdose [Unknown]
  - Dyspnoea [Recovering/Resolving]
  - Tachycardia [Recovering/Resolving]
  - Overdose [Unknown]
  - Nausea [Recovering/Resolving]
